FAERS Safety Report 8200626-3 (Version None)
Quarter: 2012Q1

REPORT INFORMATION
  Report Type: 
  Country: None (occurrence: None)
  Receive Date: 20120312
  Receipt Date: 20120306
  Transmission Date: 20120608
  Serious: Yes (Death, Life-Threatening, Hospitalization)
  Sender: FDA-Public Use
  Company Number: BE-BRISTOL-MYERS SQUIBB COMPANY-15238017

PATIENT
  Age: 65 Year
  Sex: Male
  Weight: 55 kg

DRUGS (11)
  1. CETUXIMAB [Suspect]
     Indication: HEAD AND NECK CANCER
     Dosage: REGIMEN 2: 250MG/M2 WEEKLY.LAST DOSE ON 30JUL2010 (4TH CYCLE),400MG/M2:06MAY2010-06MAY10(1 DAY).
     Route: 042
     Dates: start: 20100506
  2. CISPLATIN [Suspect]
     Indication: HEAD AND NECK CANCER
     Dosage: LAST DOSE ON 30JUL2010(4TH CYCLE
     Route: 042
     Dates: start: 20100506
  3. FOLIC ACID [Concomitant]
     Indication: PROPHYLAXIS
     Dates: start: 20100426, end: 20100803
  4. BISOPROLOL FUMARATE [Concomitant]
     Indication: HYPERTENSION
     Dates: start: 20100424, end: 20100701
  5. LEXOTAN [Concomitant]
     Indication: PROPHYLAXIS
     Dates: start: 20100321
  6. DEXAMETHASONE [Concomitant]
     Indication: PROPHYLAXIS
     Dates: start: 20100728, end: 20100731
  7. PRIMPERAN TAB [Concomitant]
     Indication: NAUSEA
     Dates: start: 20100527
  8. ALIMTA [Suspect]
     Indication: HEAD AND NECK CANCER
     Dosage: VIAL.LAST DOSE ON 30JUL2010(4TH CYCLE
     Route: 042
     Dates: start: 20100506
  9. VITAMIN B-12 [Concomitant]
     Indication: PROPHYLAXIS
     Dates: start: 20100427, end: 20100803
  10. ZANTAC [Concomitant]
     Indication: PROPHYLAXIS
     Dates: start: 20100419
  11. ACETAMINOPHEN [Concomitant]
     Indication: PROPHYLAXIS
     Dates: start: 20100414

REACTIONS (3)
  - IMPLANT SITE HAEMORRHAGE [None]
  - PNEUMONIA ASPIRATION [None]
  - RESPIRATORY FAILURE [None]
